FAERS Safety Report 21757058 (Version 1)
Quarter: 2022Q4

REPORT INFORMATION
  Report Type: Report from Study
  Country: US (occurrence: US)
  Receive Date: 20221220
  Receipt Date: 20221220
  Transmission Date: 20230113
  Serious: Yes (Hospitalization, Other)
  Sender: FDA-Public Use
  Company Number: US-ALLERGAN-2241737US

PATIENT
  Sex: Female

DRUGS (2)
  1. LINACLOTIDE [Suspect]
     Active Substance: LINACLOTIDE
     Indication: Irritable bowel syndrome
     Dosage: 290 ?G, QD
     Route: 048
  2. VRAYLAR [Suspect]
     Active Substance: CARIPRAZINE
     Indication: Product used for unknown indication
     Dosage: 4.5 MG, QD
     Route: 048

REACTIONS (4)
  - Intestinal obstruction [Unknown]
  - Nerve injury [Unknown]
  - Haemorrhoids [Unknown]
  - Product use issue [Unknown]
